FAERS Safety Report 5691615-1 (Version None)
Quarter: 2008Q2

REPORT INFORMATION
  Report Type: 
  Country: None (occurrence: None)
  Receive Date: 20080402
  Receipt Date: 20080324
  Transmission Date: 20081010
  Serious: Yes (Life-Threatening, Hospitalization)
  Sender: FDA-Public Use
  Company Number: US-AMGEN-US269790

PATIENT
  Sex: Male
  Weight: 41 kg

DRUGS (4)
  1. ENBREL [Suspect]
     Indication: JUVENILE ARTHRITIS
     Route: 058
  2. PRELONE [Suspect]
     Route: 065
     Dates: start: 20071204
  3. METHOTREXATE [Concomitant]
     Route: 065
     Dates: start: 20070810
  4. NAPROSYN [Concomitant]
     Route: 048
     Dates: start: 20070807

REACTIONS (2)
  - HALLUCINATION [None]
  - PSYCHOTIC DISORDER [None]
